FAERS Safety Report 9076473 (Version 1)
Quarter: 2013Q1

REPORT INFORMATION
  Report Type: Spontaneous
  Country: US (occurrence: US)
  Receive Date: 20130129
  Receipt Date: 20130129
  Transmission Date: 20140127
  Serious: No
  Sender: FDA-Public Use
  Company Number: US-ABBOTT-12P-163-0947664-00

PATIENT
  Age: 57 Year
  Sex: Male
  Weight: 63.56 kg

DRUGS (3)
  1. HUMIRA 40 MG/0.8 ML PEN [Suspect]
     Indication: CROHN^S DISEASE
     Route: 058
     Dates: start: 201112, end: 201202
  2. HUMIRA 40 MG/0.8 ML PEN [Suspect]
     Route: 058
     Dates: start: 201202, end: 201206
  3. IMODIUM AD [Concomitant]
     Indication: CROHN^S DISEASE

REACTIONS (7)
  - Decubitus ulcer [Not Recovered/Not Resolved]
  - Blister [Not Recovered/Not Resolved]
  - Wound secretion [Not Recovered/Not Resolved]
  - Soft tissue necrosis [Not Recovered/Not Resolved]
  - Abdominal discomfort [Not Recovered/Not Resolved]
  - Abdominal distension [Not Recovered/Not Resolved]
  - Bowel movement irregularity [Not Recovered/Not Resolved]
